FAERS Safety Report 6529065-8 (Version None)
Quarter: 2009Q4

REPORT INFORMATION
  Report Type: 
  Country: None (occurrence: None)
  Receive Date: 20091223
  Receipt Date: 20091218
  Transmission Date: 20100525
  Serious: Yes (Other)
  Sender: FDA-Public Use
  Company Number: A-US2009-31482

PATIENT
  Age: 28 Year
  Sex: Female

DRUGS (3)
  1. TRACLEER [Suspect]
     Indication: EXTREMITY NECROSIS
     Dosage: 125 MG, BID, ORAL
     Route: 048
     Dates: start: 20040101, end: 20090101
  2. PANTOPRAZOLE SODIUM [Concomitant]
  3. SYNTHROID [Concomitant]

REACTIONS (5)
  - ASTHENIA [None]
  - MUSCLE ATROPHY [None]
  - MUSCLE DISORDER [None]
  - MUSCULAR WEAKNESS [None]
  - MYOSITIS [None]
